FAERS Safety Report 4325847-1 (Version None)
Quarter: 2004Q1

REPORT INFORMATION
  Report Type: 
  Country: None (occurrence: None)
  Receive Date: 20040324
  Receipt Date: 20040312
  Transmission Date: 20041129
  Serious: Yes (Other)
  Sender: FDA-Public Use
  Company Number: US-JNJFOC-20040303211

PATIENT
  Age: 35 Year
  Sex: Female

DRUGS (8)
  1. INFLIXIMAB (INFLIXIMAB, RECEOMBINANT) LYOPHILIZED POWDER [Suspect]
     Indication: RHEUMATOID ARTHRITIS
     Dosage: INTRAVENOUS
     Route: 042
     Dates: end: 20011031
  2. INFLIXIMAB (INFLIXIMAB, RECEOMBINANT) LYOPHILIZED POWDER [Suspect]
     Indication: RHEUMATOID ARTHRITIS
     Dosage: INTRAVENOUS
     Route: 042
     Dates: start: 20010207
  3. PREDNISONE [Concomitant]
  4. ZANTAC [Concomitant]
  5. HYDROCODONE (HYDROCODONE) [Concomitant]
  6. XANAX [Concomitant]
  7. ZOLOFT [Concomitant]
  8. SINGULAIR [Concomitant]

REACTIONS (1)
  - SYSTEMIC LUPUS ERYTHEMATOSUS [None]
